FAERS Safety Report 5594398-9 (Version None)
Quarter: 2008Q1

REPORT INFORMATION
  Report Type: 
  Country: None (occurrence: None)
  Receive Date: 20080117
  Receipt Date: 20080108
  Transmission Date: 20080703
  Serious: Yes (Hospitalization)
  Sender: FDA-Public Use
  Company Number: IT-BAYER-200810384GPV

PATIENT
  Age: 51 Year
  Sex: Male
  Weight: 90 kg

DRUGS (2)
  1. FLUDARA [Suspect]
     Route: 042
     Dates: start: 20070926, end: 20071220
  2. ENDOXAN [Suspect]
     Dates: start: 20070926, end: 20071220

REACTIONS (2)
  - JAUNDICE [None]
  - TRANSAMINASES INCREASED [None]
